FAERS Safety Report 8832080 (Version 1)
Quarter: 2012Q4

REPORT INFORMATION
  Report Type: 
  Country: US (occurrence: US)
  Receive Date: 20121009
  Receipt Date: 20121009
  Transmission Date: 20130627
  Serious: Yes (Other)
  Sender: FDA-Public Use
  Company Number: US-ROCHE-1130948

PATIENT
  Sex: Female
  Weight: 142 kg

DRUGS (7)
  1. RITUXAN [Suspect]
     Indication: IDIOPATHIC THROMBOCYTOPENIC PURPURA
     Route: 065
  2. RITUXAN [Suspect]
     Indication: OFF LABEL USE
     Route: 065
     Dates: start: 20001228
  3. RITUXAN [Suspect]
     Route: 065
     Dates: start: 20010104
  4. RITUXAN [Suspect]
     Route: 065
     Dates: start: 20010111
  5. AMICAR [Concomitant]
     Route: 048
  6. DANAZOL [Concomitant]
     Route: 048
  7. PROVERA [Concomitant]
     Route: 048

REACTIONS (2)
  - Epistaxis [Unknown]
  - Vaginal haemorrhage [Unknown]
